FAERS Safety Report 15632270 (Version 1)
Quarter: 2018Q4

REPORT INFORMATION
  Report Type: Spontaneous
  Country: DE (occurrence: DE)
  Receive Date: 20181119
  Receipt Date: 20181119
  Transmission Date: 20190205
  Serious: Yes (Other)
  Sender: FDA-Public Use
  Company Number: DE-BAYER-2018-196888

PATIENT
  Age: 37 Year
  Sex: Female

DRUGS (1)
  1. KYLEENA [Suspect]
     Active Substance: LEVONORGESTREL
     Dosage: 17.5 MCG/24HR, CONT
     Route: 015
     Dates: start: 20180627

REACTIONS (9)
  - Blood cholesterol increased [None]
  - Dizziness [None]
  - Gamma-glutamyltransferase increased [None]
  - Panic attack [None]
  - Photophobia [None]
  - Alopecia [None]
  - Platelet count increased [None]
  - Visual impairment [None]
  - Essential thrombocythaemia [None]

NARRATIVE: CASE EVENT DATE: 201808
